FAERS Safety Report 20374571 (Version 1)
Quarter: 2022Q1

REPORT INFORMATION
  Report Type: Spontaneous
  Country: IN (occurrence: IN)
  Receive Date: 20220125
  Receipt Date: 20220125
  Transmission Date: 20220423
  Serious: Yes (Hospitalization)
  Sender: FDA-Public Use
  Company Number: IN-MYLANLABS-2022M1007358

PATIENT
  Age: 23 Year
  Sex: Female

DRUGS (1)
  1. ETHINYL ESTRADIOL\LEVONORGESTREL [Suspect]
     Active Substance: ETHINYL ESTRADIOL\LEVONORGESTREL
     Indication: Polycystic ovaries
     Dosage: PILLS/ SINCE LAST 2 MONTHS
     Route: 048

REACTIONS (7)
  - Pulmonary artery thrombosis [Recovering/Resolving]
  - Pulmonary venous thrombosis [Recovering/Resolving]
  - Atrial thrombosis [Recovering/Resolving]
  - Pulmonary embolism [Recovering/Resolving]
  - Cerebral thrombosis [Recovering/Resolving]
  - Pulmonary arterial hypertension [Recovering/Resolving]
  - Cerebral artery occlusion [Recovering/Resolving]
